FAERS Safety Report 8781197 (Version 2)
Quarter: 2013Q4

REPORT INFORMATION
  Report Type: Spontaneous
  Country: DE (occurrence: DE)
  Receive Date: 20120913
  Receipt Date: 20131108
  Transmission Date: 20140711
  Serious: Yes (Other)
  Sender: FDA-Public Use
  Company Number: DE-009507513-1209DEU000533

PATIENT
  Age: 25 Year
  Sex: Female

DRUGS (1)
  1. NUVARING [Suspect]
     Indication: CONTRACEPTION
     Route: 067

REACTIONS (6)
  - Pancreatitis [Unknown]
  - Factor V Leiden mutation [Unknown]
  - Bone marrow disorder [Unknown]
  - Mastocytosis [Unknown]
  - Lactose intolerance [Unknown]
  - Histamine intolerance [Unknown]
